FAERS Safety Report 9563606 (Version 1)
Quarter: 2013Q3

REPORT INFORMATION
  Report Type: Spontaneous
  Country: IN (occurrence: None)
  Receive Date: 20130926
  Receipt Date: 20130926
  Transmission Date: 20140515
  Serious: Yes (Other)
  Sender: FDA-Public Use
  Company Number: FK201304376

PATIENT
  Age: 54 Year
  Sex: Male

DRUGS (1)
  1. CISPLATIN [Suspect]
     Indication: SQUAMOUS CELL CARCINOMA OF THE TONGUE

REACTIONS (7)
  - Peripheral artery thrombosis [None]
  - Peripheral artery thrombosis [None]
  - Aortic stenosis [None]
  - Iliac artery occlusion [None]
  - Coronary artery stenosis [None]
  - Peripheral arterial occlusive disease [None]
  - Femoral artery occlusion [None]
